FAERS Safety Report 25659605 (Version 2)
Quarter: 2025Q3

REPORT INFORMATION
  Report Type: Spontaneous
  Country: US (occurrence: US)
  Receive Date: 20250808
  Receipt Date: 20250925
  Transmission Date: 20251021
  Serious: Yes (Other)
  Sender: BRISTOL-MYERS SQUIBB COMPANY
  Company Number: US-BRISTOL-MYERS SQUIBB COMPANY-2025-108725

PATIENT
  Age: 83 Year
  Sex: Female

DRUGS (3)
  1. POMALYST [Suspect]
     Active Substance: POMALIDOMIDE
     Indication: Plasma cell myeloma
     Dates: start: 202506
  2. POMALYST [Suspect]
     Active Substance: POMALIDOMIDE
     Dosage: QD FOR 21 DAYS ON
     Dates: start: 20250919
  3. XGEVA [Suspect]
     Active Substance: DENOSUMAB
     Indication: Product used for unknown indication

REACTIONS (5)
  - Osteonecrosis of jaw [Unknown]
  - Dyspnoea [Unknown]
  - Cough [Unknown]
  - Back pain [Unknown]
  - Plasma cell myeloma [Unknown]
